FAERS Safety Report 4990070-4 (Version None)
Quarter: 2006Q2

REPORT INFORMATION
  Report Type: 
  Country: None (occurrence: None)
  Receive Date: 20060501
  Receipt Date: 20060501
  Transmission Date: 20061013
  Serious: Yes (Death)
  Sender: FDA-Public Use
  Company Number: None

PATIENT
  Age: 61 Year
  Sex: Male
  Weight: 88.4514 kg

DRUGS (6)
  1. LENALIDOMIDE [Suspect]
     Indication: MYELODYSPLASTIC SYNDROME
     Dosage: 10 MG DAILY PO
     Route: 048
     Dates: start: 20060222, end: 20060422
  2. ASPIRN [Concomitant]
  3. COUMADIN [Concomitant]
  4. DEFERASIROX [Concomitant]
  5. SYNTHROID [Concomitant]
  6. LISINOPRIL [Concomitant]

REACTIONS (3)
  - FEBRILE NEUTROPENIA [None]
  - PLATELET COUNT DECREASED [None]
  - SEPSIS [None]
